FAERS Safety Report 18193362 (Version 1)
Quarter: 2020Q3

REPORT INFORMATION
  Report Type: Spontaneous
  Country: FR (occurrence: FR)
  Receive Date: 20200825
  Receipt Date: 20200825
  Transmission Date: 20201103
  Serious: Yes (Hospitalization)
  Sender: FDA-Public Use
  Company Number: FR-PFIZER INC-2020325427

PATIENT
  Age: 59 Year
  Sex: Male
  Weight: 53 kg

DRUGS (2)
  1. PACLITAXEL HOSPIRA [Suspect]
     Active Substance: PACLITAXEL
     Indication: BRONCHIAL CARCINOMA
     Dosage: 1 DF, SINGLE
     Dates: start: 20200715, end: 20200715
  2. CARBOPLATINE HOSPIRA [Suspect]
     Active Substance: CARBOPLATIN
     Indication: BRONCHIAL CARCINOMA
     Dosage: 1 DF, SINGLE
     Dates: start: 20200715, end: 20200715

REACTIONS (3)
  - Administration site erythema [Recovering/Resolving]
  - Administration site oedema [Recovering/Resolving]
  - Administration site extravasation [Recovered/Resolved]

NARRATIVE: CASE EVENT DATE: 20200715
